FAERS Safety Report 23839421 (Version 3)
Quarter: 2024Q2

REPORT INFORMATION
  Report Type: Report from Study
  Country: US (occurrence: US)
  Receive Date: 20240510
  Receipt Date: 20240520
  Transmission Date: 20240715
  Serious: Yes (Hospitalization)
  Sender: FDA-Public Use
  Company Number: US-ABBVIE-5750426

PATIENT
  Sex: Female

DRUGS (11)
  1. DUOPA [Suspect]
     Active Substance: CARBIDOPA\LEVODOPA
     Indication: Parkinson^s disease
     Route: 050
     Dates: start: 20200324
  2. DUOPA [Suspect]
     Active Substance: CARBIDOPA\LEVODOPA
  3. RYTARY [Concomitant]
     Active Substance: CARBIDOPA\LEVODOPA
     Indication: Product used for unknown indication
     Dosage: 48.75-195MG
     Route: 048
  4. RYTARY [Concomitant]
     Active Substance: CARBIDOPA\LEVODOPA
     Indication: Product used for unknown indication
     Dosage: 48.75-195MG
     Route: 048
  5. ROSUVASTATIN [Concomitant]
     Active Substance: ROSUVASTATIN
     Indication: Product used for unknown indication
     Route: 048
  6. LEXAPRO [Concomitant]
     Active Substance: ESCITALOPRAM OXALATE
     Indication: Product used for unknown indication
     Route: 048
  7. NITROFURANTOIN [Concomitant]
     Active Substance: NITROFURANTOIN
     Indication: Product used for unknown indication
     Route: 048
  8. DROXIDOPA [Concomitant]
     Active Substance: DROXIDOPA
     Indication: Product used for unknown indication
     Route: 048
  9. MONTELUKAST [Concomitant]
     Active Substance: MONTELUKAST SODIUM
     Indication: Product used for unknown indication
     Route: 048
  10. ESTRADIOL [Concomitant]
     Active Substance: ESTRADIOL
     Indication: Product used for unknown indication
     Route: 048
  11. CARBIDOPA LEVODOPA [Concomitant]
     Active Substance: CARBIDOPA\LEVODOPA
     Indication: Product used for unknown indication
     Dosage: 25MG-100MG
     Route: 048

REACTIONS (4)
  - Urinary tract infection [Recovered/Resolved]
  - Lethargy [Recovered/Resolved]
  - Urine odour abnormal [Recovered/Resolved]
  - Urine abnormality [Recovered/Resolved]

NARRATIVE: CASE EVENT DATE: 20240101
